FAERS Safety Report 4439496-8 (Version None)
Quarter: 2004Q3

REPORT INFORMATION
  Report Type: 
  Country: None (occurrence: None)
  Receive Date: 20040901
  Receipt Date: 20040901
  Transmission Date: 20050211
  Serious: Yes (Hospitalization)
  Sender: FDA-Public Use
  Company Number: None

PATIENT
  Sex: Male
  Weight: 102.0593 kg

DRUGS (2)
  1. NILANDRON [Suspect]
     Indication: PROSTATE CANCER
     Dosage: PO [STARTED ABOUT 50 DAYS AGO]
     Route: 048
  2. VIOXX [Concomitant]

REACTIONS (1)
  - BLOOD PRESSURE INCREASED [None]
